FAERS Safety Report 9920829 (Version 1)
Quarter: 2014Q1

REPORT INFORMATION
  Report Type: Report from Study
  Country: FR (occurrence: FR)
  Receive Date: 20140225
  Receipt Date: 20140225
  Transmission Date: 20141002
  Serious: Yes (Hospitalization, Other)
  Sender: FDA-Public Use
  Company Number: FR-ROCHE-1350251

PATIENT
  Sex: Male

DRUGS (18)
  1. RITUXIMAB [Suspect]
     Indication: RHEUMATOID ARTHRITIS
     Route: 042
     Dates: start: 20070201, end: 20070215
  2. RITUXIMAB [Suspect]
     Route: 042
     Dates: start: 20080711, end: 20080725
  3. RITUXIMAB [Suspect]
     Route: 042
     Dates: start: 20070721, end: 20070807
  4. RITUXIMAB [Suspect]
     Route: 042
     Dates: start: 20090331, end: 20090415
  5. RITUXIMAB [Suspect]
     Route: 042
     Dates: start: 20100204, end: 20100218
  6. RITUXIMAB [Suspect]
     Route: 042
     Dates: start: 20101012, end: 20101026
  7. RITUXIMAB [Suspect]
     Route: 042
     Dates: start: 20110422, end: 20110506
  8. RITUXIMAB [Suspect]
     Route: 042
     Dates: start: 20111220, end: 20120103
  9. RITUXIMAB [Suspect]
     Route: 042
     Dates: start: 20121106, end: 20121119
  10. CORTANCYL [Concomitant]
     Route: 065
  11. CORTANCYL [Concomitant]
     Route: 065
  12. CORTANCYL [Concomitant]
     Route: 065
  13. CORTANCYL [Concomitant]
     Route: 065
  14. IPERTEN [Concomitant]
  15. RASILEZ [Concomitant]
  16. KARDEGIC [Concomitant]
  17. FLECAINE [Concomitant]
  18. EFFERALGAN [Concomitant]

REACTIONS (6)
  - Humerus fracture [Recovering/Resolving]
  - Embolism [Not Recovered/Not Resolved]
  - Aortic aneurysm [Not Recovered/Not Resolved]
  - Tooth disorder [Recovered/Resolved]
  - Joint injury [Not Recovered/Not Resolved]
  - Fall [Unknown]
